FAERS Safety Report 23076593 (Version 3)
Quarter: 2023Q4

REPORT INFORMATION
  Report Type: Report from Study
  Country: ES (occurrence: ES)
  Receive Date: 20231017
  Receipt Date: 20231031
  Transmission Date: 20240110
  Serious: Yes (Death, Hospitalization)
  Sender: FDA-Public Use
  Company Number: ES-GILEAD-2023-0646782

PATIENT
  Sex: Male

DRUGS (6)
  1. SACITUZUMAB GOVITECAN-HZIY [Suspect]
     Active Substance: SACITUZUMAB GOVITECAN-HZIY
     Indication: Transitional cell cancer of the renal pelvis and ureter
     Dosage: 800 MG 1D AND 8 D EACH 21 DAYS
     Route: 042
     Dates: start: 20230927, end: 20231003
  2. FENOFIBRATE [Concomitant]
     Active Substance: FENOFIBRATE
     Dosage: UNK
     Dates: end: 20231012
  3. LERCANIDIPINA [LERCANIDIPINE] [Concomitant]
     Dosage: UNK
     Dates: end: 20231012
  4. BISOPROLOL [Concomitant]
     Active Substance: BISOPROLOL\BISOPROLOL FUMARATE
     Dosage: UNK
     Dates: end: 20231012
  5. ATORVASTATIN [Concomitant]
     Active Substance: ATORVASTATIN
     Dosage: UNK
     Dates: start: 20231012
  6. ALLOPURINOL [Concomitant]
     Active Substance: ALLOPURINOL
     Dosage: UNK
     Dates: end: 20231012

REACTIONS (2)
  - Urinary tract infection [Fatal]
  - Neutropenia [Fatal]

NARRATIVE: CASE EVENT DATE: 20231008
